FAERS Safety Report 5924546-X (Version None)
Quarter: 2008Q4

REPORT INFORMATION
  Report Type: 
  Country: None (occurrence: None)
  Receive Date: 20081020
  Receipt Date: 20081008
  Transmission Date: 20090506
  Serious: Yes (Disabling, Other)
  Sender: FDA-Public Use
  Company Number: US-PFIZER INC-2008085273

PATIENT
  Sex: Female

DRUGS (10)
  1. LYRICA [Suspect]
     Indication: ILL-DEFINED DISORDER
     Route: 048
     Dates: start: 20080601
  2. CYANOCOBALAMIN [Concomitant]
  3. LEXAPRO [Concomitant]
  4. XANAX [Concomitant]
  5. THORAZINE [Concomitant]
  6. CALAN [Concomitant]
     Indication: SUPRAVENTRICULAR TACHYCARDIA
  7. ATORVASTATIN CALCIUM [Concomitant]
  8. PREVACID [Concomitant]
  9. VITAMINS [Concomitant]
  10. POTASSIUM CHLORIDE [Concomitant]

REACTIONS (2)
  - DYSSTASIA [None]
  - OEDEMA PERIPHERAL [None]
